FAERS Safety Report 5751766-X (Version None)
Quarter: 2008Q2

REPORT INFORMATION
  Report Type: 
  Country: None (occurrence: None)
  Receive Date: 20080529
  Receipt Date: 20080521
  Transmission Date: 20081010
  Serious: Yes (Other)
  Sender: FDA-Public Use
  Company Number: US-JNJFOC-20080504824

PATIENT
  Sex: Female

DRUGS (1)
  1. DURAGESIC-100 [Suspect]
     Indication: PAIN
     Dosage: 100 UG/HR AND 50 UG/HR PATCHES
     Route: 062

REACTIONS (2)
  - PAIN [None]
  - ROAD TRAFFIC ACCIDENT [None]
